FAERS Safety Report 16093125 (Version 3)
Quarter: 2019Q2

REPORT INFORMATION
  Report Type: Spontaneous
  Country: US (occurrence: US)
  Receive Date: 20190320
  Receipt Date: 20190402
  Transmission Date: 20190711
  Serious: Yes (Other)
  Sender: FDA-Public Use
  Company Number: US-AMGEN-USASP2019042324

PATIENT
  Age: 33 Year
  Sex: Female
  Weight: 87 kg

DRUGS (17)
  1. SUCRALFATE. [Concomitant]
     Active Substance: SUCRALFATE
     Dosage: 1 GRAM BEFORE MEALS AND AT BEDTIME
     Route: 048
  2. LORAZEPAM. [Concomitant]
     Active Substance: LORAZEPAM
     Dosage: 1 MILLIGRAM, QD AS NEEDED
  3. ONDANSETRON [Concomitant]
     Active Substance: ONDANSETRON
     Dosage: 8 MILLIGRAM, TID
     Route: 048
  4. SULFASALAZINE. [Concomitant]
     Active Substance: SULFASALAZINE
     Indication: PRODUCT USED FOR UNKNOWN INDICATION
     Dosage: UNK
     Route: 065
  5. DICLOFENAC [Concomitant]
     Active Substance: DICLOFENAC
     Dosage: 2 GRAM, QID
     Route: 061
  6. MTX [METHOTREXATE] [Concomitant]
     Active Substance: METHOTREXATE SODIUM
     Dosage: 25 MILLIGRAM, QWK
     Route: 058
  7. ENBREL [Suspect]
     Active Substance: ETANERCEPT
     Indication: RHEUMATOID ARTHRITIS
     Dosage: 50 MILLIGRAM, QWK
     Route: 058
     Dates: start: 201807
  8. DULOXETINE. [Concomitant]
     Active Substance: DULOXETINE
     Dosage: 60 MILLIGRAM, QD
     Route: 048
  9. OMEPRAZOLE AND SODIUM BICARBONATE [Concomitant]
     Active Substance: OMEPRAZOLE\SODIUM BICARBONATE
     Dosage: 1 DOSAGE FORM, QD
     Route: 048
  10. HYDROXYCHLOROQUINE [HYDROXYCHLOROQUINE SULFATE] [Concomitant]
     Active Substance: HYDROXYCHLOROQUINE SULFATE
     Indication: PRODUCT USED FOR UNKNOWN INDICATION
     Dosage: UNK
     Route: 065
  11. AMITRIPTYLINE [Concomitant]
     Active Substance: AMITRIPTYLINE
     Dosage: 10 MILLIGRAM BEDTIME
     Route: 048
  12. MELATONIN [Concomitant]
     Active Substance: MELATONIN
     Dosage: 1 MILLIGRAM BEDTIME
  13. ALEVE [Concomitant]
     Active Substance: NAPROXEN SODIUM
     Dosage: UNK
     Route: 048
  14. MTX [METHOTREXATE] [Concomitant]
     Active Substance: METHOTREXATE SODIUM
     Dosage: 25 MILLIGRAM, QWK
     Dates: start: 201604
  15. OMEPRAZOLE. [Concomitant]
     Active Substance: OMEPRAZOLE
     Dosage: 40 MILLIGRAM, QD
     Route: 048
  16. PROMETHAZINE [Concomitant]
     Active Substance: PROMETHAZINE\PROMETHAZINE HYDROCHLORIDE
     Dosage: 25 MILLIGRAM BEDTIME
     Route: 048
  17. ENBREL [Suspect]
     Active Substance: ETANERCEPT
     Dosage: 50 MILLIGRAM, QWK
     Route: 058
     Dates: end: 201902

REACTIONS (13)
  - Bursitis [Unknown]
  - Drug ineffective [Unknown]
  - Palpitations [Not Recovered/Not Resolved]
  - Anaemia [Unknown]
  - Feeling abnormal [Unknown]
  - Hyperlipidaemia [Unknown]
  - Dyspnoea [Unknown]
  - Nail disorder [Unknown]
  - Injection site reaction [Recovering/Resolving]
  - Rheumatoid arthritis [Recovering/Resolving]
  - Tachycardia [Unknown]
  - Pulmonary mass [Unknown]
  - Osteoarthritis [Unknown]

NARRATIVE: CASE EVENT DATE: 2018
